FAERS Safety Report 4898772-5 (Version None)
Quarter: 2006Q1

REPORT INFORMATION
  Report Type: 
  Country: None (occurrence: None)
  Receive Date: 20060202
  Receipt Date: 20060126
  Transmission Date: 20060701
  Serious: Yes (Life-Threatening, Hospitalization)
  Sender: FDA-Public Use
  Company Number: FR-ABBOTT-06P-056-0323465-00

PATIENT
  Age: 24 Year
  Sex: Male

DRUGS (2)
  1. VALPROATE SODIUM [Suspect]
     Indication: SUICIDE ATTEMPT
     Route: 048
  2. ETHYL LOFLAZEPATE [Concomitant]
     Indication: DRUG USE FOR UNKNOWN INDICATION

REACTIONS (5)
  - COMA [None]
  - CONVULSION [None]
  - INTENTIONAL DRUG MISUSE [None]
  - MOTOR DYSFUNCTION [None]
  - SUICIDE ATTEMPT [None]
